FAERS Safety Report 4527700-7 (Version None)
Quarter: 2004Q4

REPORT INFORMATION
  Report Type: 
  Country: None (occurrence: None)
  Receive Date: 20041215
  Receipt Date: 20041203
  Transmission Date: 20050328
  Serious: Yes (Life-Threatening)
  Sender: FDA-Public Use
  Company Number: FR-BRISTOL-MYERS SQUIBB COMPANY-12783114

PATIENT
  Age: 42 Year
  Sex: Male
  Weight: 60 kg

DRUGS (7)
  1. VIDEX EC [Suspect]
     Route: 048
     Dates: start: 19970922, end: 20021115
  2. ZERIT [Suspect]
     Route: 048
     Dates: start: 19970922, end: 20021115
  3. NORVIR [Suspect]
     Route: 048
     Dates: start: 20031202
  4. EPIVIR [Suspect]
     Route: 048
     Dates: start: 20031202
  5. AGENERASE [Suspect]
     Route: 048
     Dates: start: 20031202
  6. VIRAMUNE [Suspect]
     Route: 048
     Dates: start: 19981012, end: 20030130
  7. VIREAD [Suspect]
     Route: 048
     Dates: start: 20031202

REACTIONS (5)
  - FOCAL NODULAR HYPERPLASIA [None]
  - HAEMATEMESIS [None]
  - HEPATIC FIBROSIS [None]
  - PORTAL HYPERTENSION [None]
  - VARICES OESOPHAGEAL [None]
